FAERS Safety Report 6903543-1 (Version None)
Quarter: 2010Q3

REPORT INFORMATION
  Report Type: 
  Country: None (occurrence: None)
  Receive Date: 20100803
  Receipt Date: 20081021
  Transmission Date: 20110219
  Serious: No
  Sender: FDA-Public Use
  Company Number: US-PFIZER INC-2008089374

PATIENT
  Sex: Male
  Weight: 68.2 kg

DRUGS (9)
  1. LYRICA [Suspect]
     Indication: TRIGEMINAL NEURALGIA
     Route: 048
     Dates: start: 20080923
  2. BISOPROLOL [Concomitant]
  3. PREDNISONE [Concomitant]
  4. PROMETHAZINE [Concomitant]
  5. COMBIVENT [Concomitant]
  6. SODIUM CHLORIDE [Concomitant]
  7. IBUPROFEN [Concomitant]
  8. ALBUTEROL [Concomitant]
  9. OXYGEN [Concomitant]

REACTIONS (3)
  - BALANCE DISORDER [None]
  - DIZZINESS [None]
  - NAUSEA [None]
